FAERS Safety Report 13537233 (Version 2)
Quarter: 2017Q4

REPORT INFORMATION
  Report Type: Report from Study
  Country: None (occurrence: BR)
  Receive Date: 20170511
  Receipt Date: 20171113
  Transmission Date: 20180320
  Serious: Yes (Other)
  Sender: FDA-Public Use
  Company Number: BR-ABBVIE-17P-020-1972230-00

PATIENT
  Sex: Female
  Weight: 60 kg

DRUGS (2)
  1. SYNTHROID [Suspect]
     Active Substance: LEVOTHYROXINE SODIUM
     Indication: THYROIDECTOMY
  2. SYNTHROID [Suspect]
     Active Substance: LEVOTHYROXINE SODIUM
     Indication: HYPOTHYROIDISM
     Dosage: DAILY DOSE: 1 TABLET; MORNING/FASTING
     Route: 048

REACTIONS (8)
  - Spinal disorder [Not Recovered/Not Resolved]
  - Osteoarthritis [Not Recovered/Not Resolved]
  - Gait disturbance [Recovering/Resolving]
  - Cataract [Recovering/Resolving]
  - Blood triglycerides increased [Recovered/Resolved]
  - Arthralgia [Not Recovered/Not Resolved]
  - Glucose tolerance impaired [Recovered/Resolved]
  - Fall [Recovering/Resolving]
